FAERS Safety Report 12463459 (Version 1)
Quarter: 2016Q2

REPORT INFORMATION
  Report Type: Spontaneous
  Country: US (occurrence: None)
  Receive Date: 20160613
  Receipt Date: 20160613
  Transmission Date: 20160815
  Serious: Yes (Hospitalization)
  Sender: FDA-Public Use
  Company Number: None

PATIENT
  Age: 77 Year
  Sex: Male
  Weight: 68.2 kg

DRUGS (1)
  1. ATORVASTATIN [Suspect]
     Active Substance: ATORVASTATIN
     Indication: HYPERLIPIDAEMIA
     Route: 048
     Dates: start: 20150203, end: 20150930

REACTIONS (7)
  - Acute kidney injury [None]
  - Depression [None]
  - Muscular weakness [None]
  - Cervical spinal stenosis [None]
  - Muscle spasms [None]
  - Gait disturbance [None]
  - Rhabdomyolysis [None]

NARRATIVE: CASE EVENT DATE: 20150925
